FAERS Safety Report 8303693-1 (Version None)
Quarter: 2012Q2

REPORT INFORMATION
  Report Type: 
  Country: None (occurrence: None)
  Receive Date: 20120423
  Receipt Date: 20120413
  Transmission Date: 20120825
  Serious: Yes (Hospitalization, Other)
  Sender: FDA-Public Use
  Company Number: US-AMGEN-USASP2012006338

PATIENT
  Age: 67 Year
  Sex: Female

DRUGS (1)
  1. ENBREL [Suspect]
     Indication: RHEUMATOID ARTHRITIS
     Dosage: 50 MG, QWK
     Dates: start: 19990119

REACTIONS (5)
  - PNEUMONIA [None]
  - HYPOKINESIA [None]
  - GAIT DISTURBANCE [None]
  - RHEUMATOID ARTHRITIS [None]
  - BREAST CANCER METASTATIC [None]
